FAERS Safety Report 14995708 (Version 2)
Quarter: 2018Q3

REPORT INFORMATION
  Report Type: Report from Study
  Country: BR (occurrence: BR)
  Receive Date: 20180611
  Receipt Date: 20180905
  Transmission Date: 20181010
  Serious: Yes (Other)
  Sender: FDA-Public Use
  Company Number: BR-ACTELION-A-CH2018-173277

PATIENT
  Age: 39 Year
  Sex: Female
  Weight: 54 kg

DRUGS (2)
  1. ZAVESCA [Suspect]
     Active Substance: MIGLUSTAT
     Indication: GAUCHER^S DISEASE TYPE I
     Dosage: 100 MG, TID
     Route: 048
     Dates: start: 200704
  2. CITONEURIN [Suspect]
     Active Substance: CYANOCOBALAMIN\PYRIDOXINE HYDROCHLORIDE\THIAMINE
     Indication: VITAMIN B12 DEFICIENCY
     Dosage: UNK
     Route: 065
     Dates: start: 201711, end: 201712

REACTIONS (6)
  - Bone disorder [Unknown]
  - Vitamin B12 deficiency [Recovering/Resolving]
  - Concomitant disease progression [Unknown]
  - Drug hypersensitivity [Unknown]
  - Amnesia [Recovering/Resolving]
  - Gingival bleeding [Recovering/Resolving]

NARRATIVE: CASE EVENT DATE: 2014
